FAERS Safety Report 10913095 (Version 2)
Quarter: 2015Q1

REPORT INFORMATION
  Report Type: Report from Study
  Country: JP (occurrence: JP)
  Receive Date: 20150313
  Receipt Date: 20150320
  Transmission Date: 20150721
  Serious: Yes (Death, Hospitalization, Other)
  Sender: FDA-Public Use
  Company Number: JP-MERCK-1501JPN009888

PATIENT
  Age: 65 Year
  Sex: Male
  Weight: 64 kg

DRUGS (12)
  1. TEMOZOLOMIDE. [Suspect]
     Active Substance: TEMOZOLOMIDE
     Indication: GLIOBLASTOMA MULTIFORME
     Dosage: 150 MG/M2, CYCLICAL (FREQUENCY REPORTED AS ONE DAILY)
     Route: 048
     Dates: start: 20061013, end: 20061017
  2. TEMOZOLOMIDE. [Suspect]
     Active Substance: TEMOZOLOMIDE
     Dosage: 150 MG/M2, CYCLICAL (FREQUENCY REPORTED AS ONE DAILY)
     Route: 048
     Dates: start: 20080201, end: 20100912
  3. FERON [Suspect]
     Active Substance: INTERFERON BETA
     Dosage: 3 THOUSAND MILLION UNIT, QM
     Route: 041
     Dates: start: 20111007, end: 20131021
  4. TEMOZOLOMIDE. [Suspect]
     Active Substance: TEMOZOLOMIDE
     Dosage: 200 MG/M2, CYCLICAL (FREQUENCY REPORTED AS ONE DAILY)
     Route: 048
     Dates: start: 20110603, end: 20130825
  5. PURSENNID (SENNOSIDES) [Concomitant]
     Indication: CONSTIPATION
     Dosage: 24 MG, BID, FORMULATION POR
     Route: 048
     Dates: start: 20111007
  6. TEMOZOLOMIDE. [Suspect]
     Active Substance: TEMOZOLOMIDE
     Dosage: 125 MG/M2, CYCLICAL (FREQUENCY REPORTED AS ONE DAILY)
     Route: 048
     Dates: start: 20130918, end: 20131025
  7. NASEA [Concomitant]
     Active Substance: RAMOSETRON HYDROCHLORIDE
     Indication: PROPHYLAXIS
     Dosage: 0.1 MG, Q2M
     Route: 048
     Dates: start: 20111007
  8. METLIGINE D [Concomitant]
     Indication: HYPOTENSION
     Dosage: 2 MG, BID
     Route: 048
     Dates: start: 20111007
  9. TEMOZOLOMIDE. [Suspect]
     Active Substance: TEMOZOLOMIDE
     Dosage: 200 MG/M2, CYCLICAL (FREQUENCY REPORTED AS ONE DAILY)
     Route: 048
     Dates: start: 20061110, end: 20080108
  10. PURSENNID (SENNOSIDES) [Concomitant]
     Indication: PROPHYLAXIS
     Dosage: DAILY DOSAGE UNKNOWN, FORMULATION POR
     Route: 048
     Dates: start: 20000723
  11. METLIGINE [Concomitant]
     Active Substance: MIDODRINE HYDROCHLORIDE
     Indication: PROPHYLAXIS
     Dosage: DAILY DOSAGE UNKNOWN, FORMULATION POR
     Route: 048
     Dates: start: 20090807
  12. NASEA [Concomitant]
     Active Substance: RAMOSETRON HYDROCHLORIDE
     Dosage: DAILY DOSAGE UNKNOWN
     Route: 048
     Dates: start: 20061113, end: 20100321

REACTIONS (6)
  - Erythropenia [Not Recovered/Not Resolved]
  - Pneumonia aspiration [Recovering/Resolving]
  - Disease progression [Fatal]
  - Pancytopenia [Recovered/Resolved]
  - Thrombocytopenia [Not Recovered/Not Resolved]
  - Myelodysplastic syndrome [Not Recovered/Not Resolved]

NARRATIVE: CASE EVENT DATE: 20130508
